FAERS Safety Report 5426673-2 (Version None)
Quarter: 2007Q3

REPORT INFORMATION
  Report Type: 
  Country: None (occurrence: None)
  Receive Date: 20070827
  Receipt Date: 20070817
  Transmission Date: 20080115
  Serious: Yes (Other)
  Sender: FDA-Public Use
  Company Number: US-PFIZER INC-2007065458

PATIENT
  Sex: Female
  Weight: 70.8 kg

DRUGS (10)
  1. DILANTIN [Interacting]
     Indication: MIGRAINE
     Route: 048
  2. XANAX [Suspect]
     Indication: STRESS
  3. DIAZEPAM [Interacting]
     Indication: MENIERE'S DISEASE
  4. DIAZEPAM [Interacting]
     Indication: BACK DISORDER
  5. DIAZEPAM [Interacting]
     Indication: SCIATICA
  6. NIACIN [Suspect]
  7. FIORINAL [Suspect]
     Dates: start: 20070101, end: 20070101
  8. ASPIRIN [Suspect]
  9. NAPROXEN [Concomitant]
  10. PROPOXYPHENE HYDROCHLORIDE [Concomitant]

REACTIONS (31)
  - ADVERSE DRUG REACTION [None]
  - ADVERSE EVENT [None]
  - ANAEMIA [None]
  - ANGIOPATHY [None]
  - ANTICONVULSANT DRUG LEVEL DECREASED [None]
  - ANTICONVULSANT DRUG LEVEL INCREASED [None]
  - ATRIAL FIBRILLATION [None]
  - BALANCE DISORDER [None]
  - BLOOD GLUCOSE ABNORMAL [None]
  - BLOOD UREA INCREASED [None]
  - BODY TEMPERATURE INCREASED [None]
  - DRUG INTERACTION [None]
  - DRY EYE [None]
  - HEADACHE [None]
  - HOT FLUSH [None]
  - HYPOVOLAEMIC SHOCK [None]
  - INTRAOCULAR LENS IMPLANT [None]
  - INTRAOCULAR PRESSURE INCREASED [None]
  - MENIERE'S DISEASE [None]
  - MIGRAINE [None]
  - MOBILITY DECREASED [None]
  - PAIN IN EXTREMITY [None]
  - PERIPHERAL VASCULAR DISORDER [None]
  - PETIT MAL EPILEPSY [None]
  - PHOTOPSIA [None]
  - SCIATICA [None]
  - STRESS [None]
  - SWELLING FACE [None]
  - TINNITUS [None]
  - TREMOR [None]
  - WEIGHT DECREASED [None]
